FAERS Safety Report 4339770-X (Version None)
Quarter: 2004Q2

REPORT INFORMATION
  Report Type: 
  Country: None (occurrence: None)
  Receive Date: 20040416
  Receipt Date: 20040409
  Transmission Date: 20050107
  Serious: Yes (Death, Other)
  Sender: FDA-Public Use
  Company Number: PHEH2004US04109

PATIENT
  Age: 57 Year
  Sex: Female

DRUGS (2)
  1. AREDIA [Suspect]
     Indication: MULTIPLE MYELOMA
     Dosage: 90 MG, QMO
     Route: 042
  2. THALIDOMIDE [Concomitant]

REACTIONS (4)
  - CARDIAC FAILURE [None]
  - ORAL SURGERY [None]
  - OSTEONECROSIS [None]
  - WOUND DRAINAGE [None]
